FAERS Safety Report 8864656 (Version 1)
Quarter: 2012Q4

REPORT INFORMATION
  Report Type: 
  Country: US (occurrence: US)
  Receive Date: 20121024
  Receipt Date: 20121024
  Transmission Date: 20130627
  Serious: No
  Sender: FDA-Public Use
  Company Number: US-AMGEN-USASP2011068754

PATIENT
  Age: 51 Year
  Sex: Female

DRUGS (1)
  1. ENBREL [Suspect]
     Indication: RHEUMATOID ARTHRITIS
     Dosage: 25 mg, 2 times/wk
     Dates: start: 1998

REACTIONS (4)
  - Toothache [Recovered/Resolved]
  - Foot deformity [Unknown]
  - Rheumatoid arthritis [Recovered/Resolved]
  - Tooth infection [Recovered/Resolved]
